FAERS Safety Report 5353738-6 (Version None)
Quarter: 2007Q2

REPORT INFORMATION
  Report Type: 
  Country: None (occurrence: None)
  Receive Date: 20070612
  Receipt Date: 20070611
  Transmission Date: 20071010
  Serious: Yes (Hospitalization, Other)
  Sender: FDA-Public Use
  Company Number: US-BRISTOL-MYERS SQUIBB COMPANY-13810296

PATIENT
  Sex: Male

DRUGS (1)
  1. TEQUIN [Suspect]
     Indication: INFECTION
     Dates: start: 20040202

REACTIONS (3)
  - DIABETES MELLITUS [None]
  - HYPERGLYCAEMIA [None]
  - HYPOGLYCAEMIA [None]
